FAERS Safety Report 24752233 (Version 2)
Quarter: 2025Q1

REPORT INFORMATION
  Report Type: Spontaneous
  Country: ES (occurrence: ES)
  Receive Date: 20241219
  Receipt Date: 20250106
  Transmission Date: 20250409
  Serious: Yes (Death, Other)
  Sender: BRISTOL-MYERS SQUIBB COMPANY
  Company Number: ES-CELGENE-ESP-2016023605

PATIENT
  Age: 77 Year
  Sex: Male

DRUGS (1)
  1. AZACITIDINE [Suspect]
     Active Substance: AZACITIDINE
     Indication: Acute myeloid leukaemia
     Dosage: 18.75 MILLIGRAM/SQ. METER?DURATION TEXT : 1 CYCLE
     Route: 058
     Dates: start: 200706

REACTIONS (1)
  - Aspergillus infection [Fatal]
